FAERS Safety Report 17682774 (Version 4)
Quarter: 2025Q4

REPORT INFORMATION
  Report Type: Spontaneous
  Country: EU (occurrence: EU)
  Receive Date: 20200419
  Receipt Date: 20251221
  Transmission Date: 20260118
  Serious: Yes (Other)
  Sender: AUROBINDO
  Company Number: EU-002147023-NVSC2020PT093124

PATIENT
  Age: 74 Year
  Sex: Female

DRUGS (12)
  1. FUROSEMIDE [Suspect]
     Active Substance: FUROSEMIDE
     Indication: Product used for unknown indication
     Dosage: 40 MILLIGRAM, ONCE A DAY
     Route: 065
  2. CEFTRIAXONE [Suspect]
     Active Substance: CEFTRIAXONE
     Indication: Whipple^s disease
     Dosage: 2 GRAM, DAILY FOR 2 WEEKS
  3. CEFTRIAXONE [Suspect]
     Active Substance: CEFTRIAXONE
     Indication: Disease recurrence
     Dosage: 2 GRAM, TWO TIMES A DAY
     Route: 065
  4. OMEPRAZOLE [Suspect]
     Active Substance: OMEPRAZOLE
     Indication: Product used for unknown indication
     Dosage: 20 MILLIGRAM, ONCE A DAY
     Route: 065
  5. Lorazepam} [Concomitant]
     Indication: Product used for unknown indication
     Dosage: 1 MILLIGRAM, ONCE A DAY
     Route: 065
  6. Hydroxychloroquine} [Concomitant]
     Indication: Disease recurrence
     Dosage: 200 MILLIGRAM, 3 TIMES A DAY
     Route: 065
  7. Hydroxychloroquine} [Concomitant]
     Indication: Whipple^s disease
  8. Doxycycline} [Concomitant]
     Indication: Disease recurrence
     Dosage: 100 MILLIGRAM, TWO TIMES A DAY
     Route: 065
  9. Doxycycline} [Concomitant]
     Indication: Whipple^s disease
  10. Sulfamethoxazole} [Concomitant]
     Indication: Whipple^s disease
     Dosage: 160 MILLIGRAM, TWO TIMES A DAY
     Route: 065
  11. Sulfamethoxazole} [Concomitant]
     Dosage: 800 MILLIGRAM, TWO TIMES A DAY
     Route: 065
  12. SULFAMETHOXAZOLE [Concomitant]
     Active Substance: SULFAMETHOXAZOLE
     Indication: Whipple^s disease
     Dosage: 800MG / 160MG BID
     Route: 065

REACTIONS (16)
  - Oedema [Unknown]
  - Protein total decreased [Recovered/Resolved]
  - Asthenia [Unknown]
  - Arthralgia [Unknown]
  - Leukocytosis [Recovered/Resolved]
  - Diarrhoea [Recovered/Resolved]
  - Dyspnoea [Unknown]
  - Hypochromic anaemia [Recovered/Resolved]
  - Retroperitoneal lymphadenopathy [Unknown]
  - Whipple^s disease [Unknown]
  - Pallor [Unknown]
  - Abdominal pain [Unknown]
  - Vomiting [Unknown]
  - Anaemia [Recovered/Resolved]
  - Weight decreased [Recovering/Resolving]
  - Off label use [Unknown]
